FAERS Safety Report 7227505-2 (Version None)
Quarter: 2011Q1

REPORT INFORMATION
  Report Type: 
  Country: None (occurrence: None)
  Receive Date: 20110114
  Receipt Date: 20110107
  Transmission Date: 20110831
  Serious: Yes (Other)
  Sender: FDA-Public Use
  Company Number: JP-BRISTOL-MYERS SQUIBB COMPANY-15482342

PATIENT
  Age: 83 Year
  Sex: Female

DRUGS (6)
  1. CARBOPLATIN [Suspect]
     Indication: MALIGNANT ASCITES
     Route: 041
  2. CISPLATIN [Suspect]
     Indication: OVARIAN CANCER
     Route: 033
  3. CISPLATIN [Suspect]
     Indication: MALIGNANT ASCITES
     Route: 033
  4. DOCETAXEL [Suspect]
     Indication: MALIGNANT ASCITES
  5. CARBOPLATIN [Suspect]
     Indication: OVARIAN CANCER
     Route: 041
  6. DOCETAXEL [Suspect]
     Indication: OVARIAN CANCER

REACTIONS (7)
  - GASTROENTERITIS STAPHYLOCOCCAL [None]
  - CLOSTRIDIUM DIFFICILE COLITIS [None]
  - CYTOMEGALOVIRUS INFECTION [None]
  - MELAENA [None]
  - SHOCK [None]
  - NEUTROPHIL COUNT DECREASED [None]
  - RECTAL ULCER [None]
